FAERS Safety Report 9358437 (Version 1)
Quarter: 2013Q2

REPORT INFORMATION
  Report Type: Spontaneous
  Country: US (occurrence: None)
  Receive Date: 20130619
  Receipt Date: 20130619
  Transmission Date: 20140414
  Serious: Yes (Other)
  Sender: FDA-Public Use
  Company Number: None

PATIENT
  Age: 32 Year
  Sex: Female
  Weight: 90 kg

DRUGS (2)
  1. FABRAZYME 35 MG [Suspect]
     Route: 041
  2. FABRAZYME 5 MG [Suspect]

REACTIONS (6)
  - Feeling hot [None]
  - Miliaria [None]
  - Hyperhidrosis [None]
  - Pruritus [None]
  - Throat irritation [None]
  - Infusion related reaction [None]
